FAERS Safety Report 9153922 (Version 1)
Quarter: 2013Q1

REPORT INFORMATION
  Report Type: Spontaneous
  Country: JP (occurrence: JP)
  Receive Date: 20130311
  Receipt Date: 20130311
  Transmission Date: 20140127
  Serious: Yes (Other)
  Sender: FDA-Public Use
  Company Number: JP-ASTELLAS-2013JP003265

PATIENT
  Age: 14 Year
  Sex: Male

DRUGS (4)
  1. PROGRAF [Suspect]
     Indication: X-LINKED LYMPHOPROLIFERATIVE SYNDROME
     Dosage: UNK
     Route: 065
  2. 5 ASA [Concomitant]
     Route: 065
  3. 6-MP [Concomitant]
     Dosage: UNK
     Route: 065
  4. INFLIXIMAB [Concomitant]
     Route: 065

REACTIONS (2)
  - Drug ineffective for unapproved indication [Unknown]
  - X-linked lymphoproliferative syndrome [Unknown]
